FAERS Safety Report 25406252 (Version 2)
Quarter: 2025Q2

REPORT INFORMATION
  Report Type: Report from Study
  Country: IE (occurrence: IE)
  Receive Date: 20250606
  Receipt Date: 20250611
  Transmission Date: 20250717
  Serious: Yes (Other)
  Sender: ABBVIE
  Company Number: IE-ABBVIE-6313406

PATIENT
  Age: 36 Year
  Sex: Female

DRUGS (2)
  1. ADALIMUMAB [Suspect]
     Active Substance: ADALIMUMAB
     Indication: Crohn^s disease
     Route: 058
  2. AZATHIOPRINE [Concomitant]
     Active Substance: AZATHIOPRINE
     Indication: Product used for unknown indication
     Route: 065

REACTIONS (5)
  - Ileocaecal resection [Unknown]
  - Maternal exposure during pregnancy [Unknown]
  - Crohn^s disease [Unknown]
  - Live birth [Unknown]
  - Drug ineffective [Unknown]
